FAERS Safety Report 10538317 (Version 2)
Quarter: 2014Q4

REPORT INFORMATION
  Report Type: Spontaneous
  Country: FR (occurrence: None)
  Receive Date: 20141021
  Receipt Date: 20141128
  Transmission Date: 20150529
  Serious: Yes (Hospitalization)
  Sender: FDA-Public Use
  Company Number: 2577111

PATIENT
  Age: 14 Year
  Sex: Male

DRUGS (10)
  1. DOXORUBICINE ACCORD [Suspect]
     Active Substance: DOXORUBICIN
     Indication: EWING^S SARCOMA
     Dosage: NOT OTHERWISE SPECIFIED
     Route: 042
     Dates: start: 20140626, end: 20140628
  2. ZOPHREN /00955301/ [Suspect]
     Active Substance: ONDANSETRON
     Indication: NAUSEA
     Dosage: NOT OTHERWISE SPECIFIED
     Route: 042
     Dates: start: 20140626, end: 20140628
  3. PLITICAN [Suspect]
     Active Substance: ALIZAPRIDE HYDROCHLORIDE
     Indication: NAUSEA
     Route: 042
     Dates: start: 20140626, end: 20140627
  4. VINCRISTINE SULFATE. [Suspect]
     Active Substance: VINCRISTINE SULFATE
     Indication: EWING^S SARCOMA
     Route: 042
     Dates: start: 20140626, end: 20140626
  5. ETOPOSIDE PHOSPHATE [Suspect]
     Active Substance: ETOPOSIDE PHOSPHATE
     Indication: EWING^S SARCOMA
     Dosage: NOT OTHERWISE SPECIFIED
     Route: 042
     Dates: start: 20140626, end: 20140628
  6. PARACETAMOL [Suspect]
     Active Substance: ACETAMINOPHEN
     Indication: PAIN
     Dosage: NOT OTHERWISE SPECIFIED
     Route: 042
     Dates: start: 20140627, end: 20140627
  7. NALBUPHINE [Suspect]
     Active Substance: NALBUPHINE
     Indication: PAIN
     Dosage: NOT OTHERWISE SPECIFIED
     Route: 042
     Dates: start: 20140627, end: 20140628
  8. MESNA. [Suspect]
     Active Substance: MESNA
     Indication: EWING^S SARCOMA
     Dosage: NOT OTHERWISE SPECIFIED
     Route: 042
     Dates: start: 20140626, end: 20140627
  9. IFOSFAMIDE. [Suspect]
     Active Substance: IFOSFAMIDE
     Indication: EWING^S SARCOMA
     Dates: start: 20140626, end: 20140627
  10. EMEND [Suspect]
     Active Substance: APREPITANT
     Indication: NAUSEA
     Route: 048
     Dates: start: 20140626, end: 20140628

REACTIONS (3)
  - Somnolence [None]
  - Palpitations [None]
  - Tachycardia [None]

NARRATIVE: CASE EVENT DATE: 20140627
